FAERS Safety Report 7555973-5 (Version None)
Quarter: 2011Q2

REPORT INFORMATION
  Report Type: 
  Country: None (occurrence: None)
  Receive Date: 20110619
  Receipt Date: 20110607
  Transmission Date: 20111010
  Serious: Yes (Hospitalization, Other)
  Sender: FDA-Public Use
  Company Number: US-ELI_LILLY_AND_COMPANY-US201104008045

PATIENT
  Age: 79 Year
  Sex: Female
  Weight: 64 kg

DRUGS (16)
  1. PERCOCET [Concomitant]
  2. VITAMIN E [Concomitant]
  3. FLAXSEED OIL [Concomitant]
  4. ATENOLOL [Concomitant]
  5. TYLENOL (CAPLET) [Concomitant]
  6. FORTEO [Suspect]
     Dosage: 20 UG, QD
     Route: 058
  7. SENNA-MINT WAF [Concomitant]
  8. ASCORBIC ACID [Concomitant]
  9. FISH OIL [Concomitant]
  10. FORTEO [Suspect]
     Indication: OSTEOPOROSIS
     Dosage: 20 UG, QD
     Route: 058
     Dates: start: 20090330
  11. DIGOXIN [Concomitant]
  12. CYMBALTA [Concomitant]
  13. SUPER B COMPLEX [Concomitant]
  14. GARLIC [Concomitant]
  15. CALTRATE + D [Concomitant]
  16. FORTEO [Suspect]
     Dosage: 20 UG, QD
     Route: 058

REACTIONS (8)
  - BONE DEVELOPMENT ABNORMAL [None]
  - DEVICE COMPONENT ISSUE [None]
  - CLOSTRIDIAL INFECTION [None]
  - DEVICE RELATED INFECTION [None]
  - RENAL FAILURE ACUTE [None]
  - PSEUDARTHROSIS [None]
  - WOUND INFECTION [None]
  - PSEUDOMONAS INFECTION [None]
